FAERS Safety Report 5855877-X (Version None)
Quarter: 2008Q3

REPORT INFORMATION
  Report Type: 
  Country: None (occurrence: None)
  Receive Date: 20080821
  Receipt Date: 20080821
  Transmission Date: 20090109
  Serious: Yes (Other)
  Sender: FDA-Public Use
  Company Number: None

PATIENT
  Age: 29 Year
  Sex: Male
  Weight: 127.0072 kg

DRUGS (1)
  1. MIRALAX [Suspect]
     Indication: CONSTIPATION
     Dosage: 17GM 1 TIME PO
     Route: 048
     Dates: start: 20080819, end: 20080819

REACTIONS (2)
  - DYSPHONIA [None]
  - URTICARIA [None]
